FAERS Safety Report 4886688-X (Version None)
Quarter: 2006Q1

REPORT INFORMATION
  Report Type: 
  Country: None (occurrence: None)
  Receive Date: 20060120
  Receipt Date: 20050225
  Transmission Date: 20060701
  Serious: Yes (Other)
  Sender: FDA-Public Use
  Company Number: BR-ROCHE-396895

PATIENT
  Sex: Female
  Weight: 3.2 kg

DRUGS (2)
  1. ROACUTAN [Suspect]
     Indication: ACNE
     Dates: start: 20031115, end: 20050105
  2. UNSPECIFIED DRUG [Concomitant]
     Indication: CONTRACEPTION
     Dates: start: 20031115, end: 20050105

REACTIONS (5)
  - CAESAREAN SECTION [None]
  - DRUG EXPOSURE BEFORE PREGNANCY [None]
  - NO ADVERSE EFFECT [None]
  - NORMAL NEWBORN [None]
  - PREGNANCY [None]
